FAERS Safety Report 6417742-9 (Version None)
Quarter: 2009Q4

REPORT INFORMATION
  Report Type: 
  Country: None (occurrence: None)
  Receive Date: 20091027
  Receipt Date: 20091027
  Transmission Date: 20100525
  Serious: Yes (Hospitalization)
  Sender: FDA-Public Use
  Company Number: None

PATIENT
  Age: 58 Year
  Sex: Female
  Weight: 68.6 kg

DRUGS (2)
  1. AVASTIN [Suspect]
     Indication: BREAST CANCER STAGE IV
     Dosage: 686MG WKS 1 + 3 OF EVERY CYCLE  IV (042)
     Route: 042
     Dates: start: 20090923
  2. AVASTIN [Suspect]
     Indication: BREAST CANCER STAGE IV
     Dosage: 686MG WKS 1 + 3 OF EVERY CYCLE  IV (042)
     Route: 042
     Dates: start: 20091007

REACTIONS (7)
  - ABDOMINAL DISTENSION [None]
  - ABDOMINAL PAIN [None]
  - CONSTIPATION [None]
  - GASTRIC ULCER [None]
  - MUSCULOSKELETAL PAIN [None]
  - SMALL INTESTINAL OBSTRUCTION [None]
  - SMALL INTESTINAL PERFORATION [None]
